FAERS Safety Report 4842508-0 (Version None)
Quarter: 2005Q4

REPORT INFORMATION
  Report Type: 
  Country: None (occurrence: None)
  Receive Date: 20051129
  Receipt Date: 20051114
  Transmission Date: 20060501
  Serious: Yes (Hospitalization, Other)
  Sender: FDA-Public Use
  Company Number: US_2005-015295

PATIENT
  Age: 26 Year
  Sex: Female

DRUGS (1)
  1. BETASERON [Suspect]
     Indication: MULTIPLE SCLEROSIS
     Dosage: 8 MIU, EVERY 2D, SUBCUTANEOUS
     Route: 058
     Dates: start: 20050531, end: 20050715

REACTIONS (5)
  - AMNESIA [None]
  - INJECTION SITE REACTION [None]
  - PUSTULAR PSORIASIS [None]
  - SKIN INFECTION [None]
  - SKIN NECROSIS [None]
